FAERS Safety Report 15804866 (Version 2)
Quarter: 2019Q1

REPORT INFORMATION
  Report Type: Report from Study
  Country: CA (occurrence: CA)
  Receive Date: 20190109
  Receipt Date: 20190116
  Transmission Date: 20190417
  Serious: Yes (Other)
  Sender: FDA-Public Use
  Company Number: CA-BRISTOL-MYERS SQUIBB COMPANY-BMS-2018-079706

PATIENT
  Age: 24 Year
  Sex: Female

DRUGS (1)
  1. ABATACEPT [Suspect]
     Active Substance: ABATACEPT
     Indication: RHEUMATOID ARTHRITIS
     Dosage: UNK, Q4WK
     Route: 042

REACTIONS (11)
  - Labyrinthitis [Unknown]
  - Stress [Unknown]
  - Arthritis [Unknown]
  - Peripheral swelling [Unknown]
  - Vertigo [Unknown]
  - Performance status decreased [Recovering/Resolving]
  - Malaise [Unknown]
  - Poor venous access [Unknown]
  - Drug ineffective [Unknown]
  - Vomiting [Unknown]
  - Rheumatoid arthritis [Recovering/Resolving]

NARRATIVE: CASE EVENT DATE: 20180820
